FAERS Safety Report 5470955-5 (Version None)
Quarter: 2007Q3

REPORT INFORMATION
  Report Type: 
  Country: None (occurrence: None)
  Receive Date: 20070928
  Receipt Date: 20070920
  Transmission Date: 20080115
  Serious: Yes (Death)
  Sender: FDA-Public Use
  Company Number: IT-AMGEN-US244512

PATIENT
  Sex: Male

DRUGS (3)
  1. ENBREL [Suspect]
     Indication: RHEUMATOID ARTHRITIS
     Dosage: 50 MG WEEKLY
     Route: 058
     Dates: start: 20050601, end: 20070720
  2. INDOXEN [Concomitant]
     Dosage: ONE DOSE
  3. ESOMEPRAZOLE MAGNESIUM [Concomitant]
     Dosage: ONE DOSE

REACTIONS (1)
  - AORTIC ANEURYSM RUPTURE [None]
